FAERS Safety Report 7060031-2 (Version None)
Quarter: 2010Q4

REPORT INFORMATION
  Report Type: 
  Country: None (occurrence: None)
  Receive Date: 20101025
  Receipt Date: 20080602
  Transmission Date: 20110411
  Serious: Yes (Other)
  Sender: FDA-Public Use
  Company Number: US-BRISTOL-MYERS SQUIBB COMPANY-14213169

PATIENT
  Age: 70 Year
  Sex: Female
  Weight: 68 kg

DRUGS (2)
  1. BUSPAR [Suspect]
     Indication: ANXIETY
     Dates: start: 20080519, end: 20080526
  2. COZAAR [Concomitant]

REACTIONS (3)
  - NERVOUSNESS [None]
  - SLEEP DISORDER [None]
  - SUICIDAL IDEATION [None]
